FAERS Safety Report 6409886-2 (Version None)
Quarter: 2009Q4

REPORT INFORMATION
  Report Type: 
  Country: None (occurrence: None)
  Receive Date: 20091022
  Receipt Date: 20091012
  Transmission Date: 20100525
  Serious: Yes (Other)
  Sender: FDA-Public Use
  Company Number: US-TYCO HEALTHCARE/MALLINCKRODT-T200900735

PATIENT
  Sex: Female
  Weight: 52.7 kg

DRUGS (19)
  1. OPTIMARK [Suspect]
     Indication: NUCLEAR MAGNETIC RESONANCE IMAGING BRAIN
     Dosage: 15 ML (CC), SINGLE
     Route: 042
     Dates: start: 20070607, end: 20070607
  2. COZAAR [Concomitant]
     Indication: BLOOD PRESSURE
     Dosage: UNK
     Dates: start: 20070101
  3. SENSIPAR [Concomitant]
     Indication: DIALYSIS
     Dosage: 90 MG, UNK
  4. RENAGEL                            /01459901/ [Concomitant]
     Indication: DIALYSIS
     Dosage: 800 MG, UNK
  5. OXYCONTIN [Concomitant]
     Indication: PAIN
     Dosage: UNK
     Dates: start: 20070101
  6. PREDNISONE [Concomitant]
     Indication: PAIN
     Dosage: UNK
     Dates: start: 20080101
  7. IRON [Concomitant]
     Indication: SUPPLEMENTATION THERAPY
  8. VITAMINS                           /90003601/ [Concomitant]
  9. CARDIAC THERAPY [Concomitant]
  10. BLOOD THINNER [Concomitant]
  11. ADVAIR DISKUS 100/50 [Concomitant]
  12. ALBUTEROL [Concomitant]
  13. ASPIRIN [Concomitant]
     Dosage: 81 MG, UNK
  14. CARDIZEM [Concomitant]
  15. DILANTIN [Concomitant]
  16. CLONIDINE [Concomitant]
  17. FOSRENOL [Concomitant]
  18. LOPRESSOR [Concomitant]
  19. VASOTEC [Concomitant]

REACTIONS (3)
  - ARRHYTHMIA [None]
  - DRUG PRESCRIBING ERROR [None]
  - NEPHROGENIC SYSTEMIC FIBROSIS [None]
